FAERS Safety Report 6087906-5 (Version None)
Quarter: 2009Q1

REPORT INFORMATION
  Report Type: 
  Country: None (occurrence: None)
  Receive Date: 20090219
  Receipt Date: 20090219
  Transmission Date: 20090719
  Serious: No
  Sender: FDA-Public Use
  Company Number: None

PATIENT
  Age: 41 Year
  Sex: Male
  Weight: 81.6475 kg

DRUGS (5)
  1. DIVALPROEX SODIUM [Suspect]
     Dosage: 500MG PO
     Route: 048
  2. QUETIAPINE FUMARATE [Concomitant]
  3. ASPIRIN [Concomitant]
  4. OMEPRAZOLE [Concomitant]
  5. BENZTROPINE [Concomitant]

REACTIONS (2)
  - PLATELET COUNT DECREASED [None]
  - THINKING ABNORMAL [None]
